FAERS Safety Report 8955958 (Version 1)
Quarter: 2012Q4

REPORT INFORMATION
  Report Type: Report from Study
  Country: US (occurrence: US)
  Receive Date: 20121210
  Receipt Date: 20121210
  Transmission Date: 20130627
  Serious: Yes (Hospitalization)
  Sender: FDA-Public Use
  Company Number: US-AMGEN-USACT2012079010

PATIENT
  Age: 39 Year
  Sex: Female

DRUGS (6)
  1. FILGRASTIM [Suspect]
     Indication: ACUTE LYMPHOCYTIC LEUKAEMIA
     Dosage: 6 mug, UNK
     Route: 058
     Dates: start: 20120705
  2. SPRYCEL [Concomitant]
     Indication: ACUTE LYMPHOCYTIC LEUKAEMIA
     Dosage: 1750 mg, UNK
     Route: 048
     Dates: start: 20120705
  3. CYTARABINE [Concomitant]
     Indication: ACUTE LYMPHOCYTIC LEUKAEMIA
     Dosage: 22.44 g, UNK
     Dates: start: 20120705
  4. LEUCOVORIN CALCIUM [Concomitant]
     Indication: ACUTE LYMPHOCYTIC LEUKAEMIA
     Dosage: 155 mg, UNK
     Route: 042
     Dates: start: 20120705
  5. METHYLPREDNISOLONE [Concomitant]
     Indication: ACUTE LYMPHOCYTIC LEUKAEMIA
     Dosage: 300 mug, UNK
     Route: 042
     Dates: start: 20120705
  6. METHOTREXATE [Concomitant]
     Indication: ACUTE LYMPHOCYTIC LEUKAEMIA
     Dosage: 1870 mg, UNK
     Route: 042
     Dates: start: 20120705

REACTIONS (1)
  - Herpes zoster [Not Recovered/Not Resolved]
